FAERS Safety Report 9885724 (Version 2)
Quarter: 2014Q1

REPORT INFORMATION
  Report Type: Spontaneous
  Country: US (occurrence: None)
  Receive Date: 20131127
  Receipt Date: 20140228
  Transmission Date: 20141002
  Serious: Yes (Other)
  Sender: FDA-Public Use
  Company Number: 223399

PATIENT
  Age: 50 Year
  Sex: Female

DRUGS (1)
  1. PICATO GEL [Suspect]
     Indication: ACTINIC KERATOSIS
     Route: 061
     Dates: start: 20130711, end: 20130713

REACTIONS (4)
  - Application site papules [None]
  - Papule [None]
  - Erythema [None]
  - Drug administration error [None]
